FAERS Safety Report 5725148-0 (Version None)
Quarter: 2008Q2

REPORT INFORMATION
  Report Type: 
  Country: None (occurrence: None)
  Receive Date: 20080501
  Receipt Date: 20080418
  Transmission Date: 20081010
  Serious: Yes (Other)
  Sender: FDA-Public Use
  Company Number: US-MERCK-0803USA00138

PATIENT
  Age: 32 Year
  Sex: Female

DRUGS (10)
  1. SINGULAIR [Suspect]
     Indication: RHINITIS ALLERGIC
     Route: 048
     Dates: start: 20060328, end: 20071101
  2. ASTELIN [Concomitant]
     Route: 065
  3. RESTASIS [Concomitant]
     Route: 065
  4. RETIN-A [Concomitant]
     Route: 065
  5. MINOCYCLINE [Concomitant]
     Route: 065
  6. ATROVENT [Concomitant]
     Route: 065
  7. VICODIN [Concomitant]
     Route: 065
  8. ADVIL [Concomitant]
     Route: 065
  9. TYLENOL [Concomitant]
     Route: 065
  10. VITAMINS (UNSPECIFIED) [Concomitant]
     Route: 065

REACTIONS (5)
  - DRY EYE [None]
  - FATIGUE [None]
  - PAIN IN EXTREMITY [None]
  - SINUSITIS [None]
  - SUICIDAL IDEATION [None]
